FAERS Safety Report 20430413 (Version 1)
Quarter: 2022Q1

REPORT INFORMATION
  Report Type: Report from Study
  Country: BE (occurrence: BE)
  Receive Date: 20220204
  Receipt Date: 20220204
  Transmission Date: 20220423
  Serious: Yes (Hospitalization)
  Sender: FDA-Public Use
  Company Number: BE-SERVIER-S20007175

PATIENT

DRUGS (8)
  1. PEGASPARGASE [Suspect]
     Active Substance: PEGASPARGASE
     Indication: B precursor type acute leukaemia
     Dosage: 2000 IU
     Route: 065
     Dates: start: 20200703, end: 20200717
  2. VINCRISTINE SULFATE [Suspect]
     Active Substance: VINCRISTINE SULFATE
     Indication: B precursor type acute leukaemia
     Dosage: 2 MG
     Route: 065
     Dates: start: 20200630, end: 20200714
  3. TN UNSPECIFIED [Concomitant]
     Indication: B precursor type acute leukaemia
     Dosage: 80 MG, QD
     Route: 048
     Dates: start: 20200630, end: 20200713
  4. TN UNSPECIFIED [Concomitant]
     Dosage: 4 MG, QD
     Route: 037
     Dates: start: 20200630, end: 20200630
  5. TN UNSPECIFIED [Concomitant]
     Indication: B precursor type acute leukaemia
     Dosage: 750 MG, QD
     Dates: start: 20200630, end: 20200707
  6. TN UNSPECIFIED [Concomitant]
     Indication: B precursor type acute leukaemia
     Dosage: 60 MG, QD
     Dates: start: 20200630, end: 20200714
  7. TN UNSPECIFIED [Concomitant]
     Indication: B precursor type acute leukaemia
     Dosage: 15 MG
     Route: 037
     Dates: start: 20200630, end: 20200630
  8. TN UNSPECIFIED [Concomitant]
     Indication: B precursor type acute leukaemia
     Dosage: 28 ?G, QD
     Dates: end: 20200302

REACTIONS (1)
  - Constipation [Recovered/Resolved]

NARRATIVE: CASE EVENT DATE: 20200722
